FAERS Safety Report 10399405 (Version 1)
Quarter: 2014Q1

REPORT INFORMATION
  Report Type: Spontaneous
  Country: US (occurrence: None)
  Receive Date: 20130815
  Receipt Date: 20130815
  Transmission Date: 20141002
  Serious: Yes (Other)
  Sender: FDA-Public Use
  Company Number: ADR-2012-01806

PATIENT
  Age: 62 Year
  Sex: Male

DRUGS (2)
  1. BACLOFEN INTRATHECAL (BACLOFEN INJECTION) 2000MCG/ML [Suspect]
     Indication: MUSCLE SPASTICITY
     Dosage: 830.2MCG/DAY
  2. MORPHINE [Concomitant]

REACTIONS (2)
  - Hyperhidrosis [None]
  - Dizziness [None]
